FAERS Safety Report 11267255 (Version 1)
Quarter: 2015Q3

REPORT INFORMATION
  Report Type: Spontaneous
  Country: US (occurrence: US)
  Receive Date: 20150713
  Receipt Date: 20150713
  Transmission Date: 20151125
  Serious: No
  Sender: FDA-Public Use
  Company Number: US-TAKEDA-2013MPI000026

PATIENT
  Age: 17 Year
  Sex: Female
  Weight: 63.49 kg

DRUGS (4)
  1. VELCADE [Suspect]
     Active Substance: BORTEZOMIB
     Indication: ADRENAL GLAND CANCER
     Dosage: 1.3 MG/M2, UNK
     Route: 042
     Dates: start: 20130617
  2. VELCADE [Suspect]
     Active Substance: BORTEZOMIB
     Dosage: 1.3 MG/M2, UNK
     Route: 042
     Dates: end: 20130809
  3. VELCADE [Suspect]
     Active Substance: BORTEZOMIB
     Dosage: 1.3 MG/M2, UNK
     Route: 058
  4. KYTRIL                             /01178101/ [Concomitant]
     Indication: PREMEDICATION

REACTIONS (3)
  - Rash pruritic [Not Recovered/Not Resolved]
  - Injection site rash [Recovered/Resolved]
  - Product use issue [Unknown]

NARRATIVE: CASE EVENT DATE: 20130806
